FAERS Safety Report 6038471-X (Version None)
Quarter: 2009Q1

REPORT INFORMATION
  Report Type: 
  Country: None (occurrence: None)
  Receive Date: 20090115
  Receipt Date: 20081010
  Transmission Date: 20090719
  Serious: No
  Sender: FDA-Public Use
  Company Number: US-KINGPHARMUSA00001-K200801192

PATIENT
  Sex: Female
  Weight: 54.422 kg

DRUGS (4)
  1. EPIPEN [Suspect]
     Indication: FOOD ALLERGY
     Dosage: .3 MG, SINGLE
     Dates: start: 20081010, end: 20081010
  2. ACTONEL [Concomitant]
     Indication: OSTEOPOROSIS
  3. TRAZODONE HCL [Concomitant]
  4. COLAZAL [Concomitant]
     Dosage: UNK, UNK

REACTIONS (5)
  - ACCIDENTAL EXPOSURE [None]
  - EXPIRED DRUG ADMINISTERED [None]
  - HEART RATE INCREASED [None]
  - INJECTION SITE DISCOLOURATION [None]
  - MUSCULOSKELETAL STIFFNESS [None]
